FAERS Safety Report 16197479 (Version 1)
Quarter: 2019Q2

REPORT INFORMATION
  Report Type: Report from Study
  Country: US (occurrence: US)
  Receive Date: 20190415
  Receipt Date: 20190415
  Transmission Date: 20190711
  Serious: Yes (Other)
  Sender: FDA-Public Use
  Company Number: US-ROCHE-2264592

PATIENT
  Age: 66 Year
  Sex: Female
  Weight: 60 kg

DRUGS (9)
  1. SORIATANE [Concomitant]
     Active Substance: ACITRETIN
     Route: 065
  2. CLOBETASOL [Concomitant]
     Active Substance: CLOBETASOL
     Route: 061
  3. LEVOTHYROXINE. [Concomitant]
     Active Substance: LEVOTHYROXINE
     Dosage: 112MCG
     Route: 065
  4. LATANOPROST. [Concomitant]
     Active Substance: LATANOPROST
     Route: 065
  5. VEMURAFENIB. [Suspect]
     Active Substance: VEMURAFENIB
     Route: 048
     Dates: start: 20160130
  6. TIMOLOL MALEATE. [Concomitant]
     Active Substance: TIMOLOL MALEATE
     Route: 065
  7. ERGOCALCIFEROL. [Concomitant]
     Active Substance: ERGOCALCIFEROL
  8. ALPHAGAN P [Concomitant]
     Active Substance: BRIMONIDINE TARTRATE
     Route: 065
  9. VEMURAFENIB. [Suspect]
     Active Substance: VEMURAFENIB
     Indication: PAPILLARY THYROID CANCER
     Route: 048
     Dates: start: 20151211, end: 20160109

REACTIONS (2)
  - Aspartate aminotransferase increased [Unknown]
  - Alanine aminotransferase increased [Unknown]

NARRATIVE: CASE EVENT DATE: 20160113
